FAERS Safety Report 6212691-3 (Version None)
Quarter: 2009Q2

REPORT INFORMATION
  Report Type: 
  Country: None (occurrence: None)
  Receive Date: 20090603
  Receipt Date: 20090527
  Transmission Date: 20091009
  Serious: Yes (Other)
  Sender: FDA-Public Use
  Company Number: GB-ROCHE-635371

PATIENT
  Age: 78 Year
  Sex: Female

DRUGS (6)
  1. XENICAL [Suspect]
     Indication: WEIGHT CONTROL
     Route: 048
     Dates: start: 20081014
  2. I CAPS [Interacting]
     Indication: MACULAR DEGENERATION
     Route: 048
  3. IRON [Concomitant]
     Route: 048
  4. OMEPRAZOLE [Concomitant]
     Route: 048
  5. PRIMROSE [Concomitant]
  6. VITAMIN B COMPLEX CAP [Concomitant]
     Dosage: ACTIVE CONSTITUENT: VITAMIN B5.

REACTIONS (2)
  - DRUG INTERACTION [None]
  - MACULAR DEGENERATION [None]
